FAERS Safety Report 22715444 (Version 8)
Quarter: 2023Q4

REPORT INFORMATION
  Report Type: Spontaneous
  Country: US (occurrence: US)
  Receive Date: 20230718
  Receipt Date: 20231117
  Transmission Date: 20240110
  Serious: No
  Sender: FDA-Public Use
  Company Number: US-BIOGEN-2023BI01213975

PATIENT
  Sex: Male

DRUGS (1)
  1. TYSABRI [Suspect]
     Active Substance: NATALIZUMAB
     Indication: Multiple sclerosis
     Route: 050
     Dates: start: 20230630

REACTIONS (6)
  - Dyspepsia [Unknown]
  - Erythema [Unknown]
  - Ear swelling [Unknown]
  - Multiple sclerosis relapse [Unknown]
  - Herpes zoster [Unknown]
  - Ear disorder [Unknown]

NARRATIVE: CASE EVENT DATE: 20230101
